FAERS Safety Report 14169600 (Version 1)
Quarter: 2017Q4

REPORT INFORMATION
  Report Type: Spontaneous
  Country: JP (occurrence: JP)
  Receive Date: 20171108
  Receipt Date: 20171108
  Transmission Date: 20180321
  Serious: Yes (Hospitalization)
  Sender: FDA-Public Use
  Company Number: JP-ASTRAZENECA-2017SF12875

PATIENT
  Age: 49 Year
  Sex: Female

DRUGS (2)
  1. FORXIGA [Suspect]
     Active Substance: DAPAGLIFLOZIN
     Indication: TYPE 2 DIABETES MELLITUS
     Dosage: 10.0DF ONCE/SINGLE ADMINISTRATION
     Route: 048
  2. INSULIN GLARGINE (GENETICAL RECOMBINATION) [Suspect]
     Active Substance: INSULIN GLARGINE
     Indication: COMPLETED SUICIDE
     Dosage: 600.0IU ONCE/SINGLE ADMINISTRATION
     Route: 065

REACTIONS (3)
  - Overdose [Unknown]
  - Hypoglycaemia [Unknown]
  - Suicide attempt [Unknown]
